FAERS Safety Report 25423244 (Version 1)
Quarter: 2025Q2

REPORT INFORMATION
  Report Type: Spontaneous
  Country: JP (occurrence: JP)
  Receive Date: 20250611
  Receipt Date: 20250611
  Transmission Date: 20250717
  Serious: Yes (Other)
  Sender: ROCHE
  Company Number: JP-CHUGAI-2025018256AA

PATIENT
  Age: 76 Year
  Sex: Male

DRUGS (2)
  1. ACTEMRA [Suspect]
     Active Substance: TOCILIZUMAB
     Indication: Rheumatoid arthritis
     Route: 058
  2. ACTEMRA [Suspect]
     Active Substance: TOCILIZUMAB
     Route: 058
     Dates: end: 202408

REACTIONS (2)
  - Lymphoma [Recovered/Resolved]
  - Lung neoplasm malignant [Unknown]
